FAERS Safety Report 11142981 (Version 2)
Quarter: 2015Q3

REPORT INFORMATION
  Report Type: Spontaneous
  Country: US (occurrence: US)
  Receive Date: 20150526
  Receipt Date: 20150902
  Transmission Date: 20151125
  Serious: Yes (Hospitalization, Other)
  Sender: FDA-Public Use
  Company Number: US-JNJFOC-20150514544

PATIENT
  Age: 15 Year
  Sex: Female
  Weight: 66.68 kg

DRUGS (3)
  1. TYLENOL EXTRA STRENGTH [Suspect]
     Active Substance: ACETAMINOPHEN
     Indication: HEADACHE
     Dosage: 500 MG
     Route: 048
     Dates: start: 20060218, end: 20060221
  2. TYLENOL PM [Suspect]
     Active Substance: ACETAMINOPHEN\DIPHENHYDRAMINE
     Indication: INSOMNIA
     Dosage: 500 MG, 2 TABLETS. 1-2 TABLETS FOR EVERY 1-2 EVERY HOURS FOR 12 HOURS (AROUND 24)
     Route: 048
     Dates: start: 20060201, end: 20060221
  3. TYLENOL PM [Suspect]
     Active Substance: ACETAMINOPHEN\DIPHENHYDRAMINE
     Indication: HEADACHE
     Dosage: 500 MG, 2 TABLETS. 1-2 TABLETS FOR EVERY 1-2 EVERY HOURS FOR 12 HOURS (AROUND 24)
     Route: 048
     Dates: start: 20060201, end: 20060221

REACTIONS (3)
  - Acute hepatic failure [Unknown]
  - Accidental overdose [Unknown]
  - Toxicity to various agents [Unknown]

NARRATIVE: CASE EVENT DATE: 200602
